FAERS Safety Report 4930800-0 (Version None)
Quarter: 2006Q1

REPORT INFORMATION
  Report Type: 
  Country: None (occurrence: None)
  Receive Date: 20060227
  Receipt Date: 20060215
  Transmission Date: 20060701
  Serious: Yes (Other)
  Sender: FDA-Public Use
  Company Number: 222281

PATIENT
  Age: 15 Year
  Sex: Male

DRUGS (2)
  1. NUTROPIN AQ [Suspect]
     Indication: GROWTH HORMONE DEFICIENCY
     Dosage: 1.4 MG, 6/WEEK, SUBCUTANEOUS
     Route: 058
     Dates: start: 20050201
  2. EYE DROPS NOS (EYE DROPS NOS) [Concomitant]

REACTIONS (1)
  - GLAUCOMA [None]
